FAERS Safety Report 5705989-6 (Version None)
Quarter: 2008Q2

REPORT INFORMATION
  Report Type: 
  Country: None (occurrence: None)
  Receive Date: 20080415
  Receipt Date: 20080407
  Transmission Date: 20081010
  Serious: Yes (Death, Hospitalization)
  Sender: FDA-Public Use
  Company Number: US-AVENTIS-200719699GDDC

PATIENT
  Age: 75 Year
  Sex: Male
  Weight: 85.73 kg

DRUGS (4)
  1. TAXOTERE [Suspect]
     Route: 042
     Dates: start: 20071009, end: 20071009
  2. OXALIPLATIN [Suspect]
     Route: 042
     Dates: start: 20071009, end: 20071009
  3. FILGRASTIM [Concomitant]
     Indication: NEUTROPENIA
     Dates: start: 20071010, end: 20071017
  4. METRONIDAZOLE HCL [Concomitant]
     Dates: start: 20070925, end: 20071017

REACTIONS (9)
  - ASTHENIA [None]
  - CONDITION AGGRAVATED [None]
  - DEHYDRATION [None]
  - DIARRHOEA [None]
  - HYPERKALAEMIA [None]
  - METABOLIC ACIDOSIS [None]
  - METASTATIC NEOPLASM [None]
  - RENAL FAILURE [None]
  - VOMITING [None]
